FAERS Safety Report 5059559-6 (Version None)
Quarter: 2006Q2

REPORT INFORMATION
  Report Type: 
  Country: None (occurrence: None)
  Receive Date: 20060629
  Receipt Date: 20060216
  Transmission Date: 20061013
  Serious: No
  Sender: FDA-Public Use
  Company Number: PHEH2006US02260

PATIENT
  Age: 60 Year
  Sex: Male

DRUGS (8)
  1. ENABLEX [Suspect]
     Indication: HYPERTONIC BLADDER
     Dosage: 7.5 MG, QD, ORAL
     Route: 048
     Dates: start: 20050213
  2. FLOMAX [Concomitant]
  3. HUMULIN (INSULIN HUMAN, INSULIN ISOPHANE HUMAN BIOSYNTHETIC) [Concomitant]
  4. LANOXIN [Concomitant]
  5. ALTACE [Concomitant]
  6. PLAVIX [Concomitant]
  7. TOPROL-XL [Concomitant]
  8. VICODIN [Concomitant]

REACTIONS (1)
  - DRUG INEFFECTIVE [None]
